FAERS Safety Report 4611310-7 (Version None)
Quarter: 2005Q2

REPORT INFORMATION
  Report Type: 
  Country: None (occurrence: None)
  Receive Date: 20050311
  Receipt Date: 20041209
  Transmission Date: 20051028
  Serious: No
  Sender: FDA-Public Use
  Company Number: 2004-BP-13450BP

PATIENT
  Age: 92 Year
  Sex: Female
  Weight: 39.5 kg

DRUGS (8)
  1. SPIRIVA [Suspect]
     Indication: CHRONIC OBSTRUCTIVE PULMONARY DISEASE
     Dosage: 18 MCG (18 MCG, QD), IH
     Route: 055
     Dates: start: 20040826, end: 20041201
  2. HYDROCHLOROTHIAZIDE [Concomitant]
  3. POTASSIUM CHLORIDE [Concomitant]
  4. ASPIRIN [Concomitant]
  5. IBUPROFEN [Concomitant]
  6. CALCIUM GLUCONATE [Concomitant]
  7. HYDROCODONE BITARTRATE [Concomitant]
  8. VICES [Concomitant]

REACTIONS (3)
  - FATIGUE [None]
  - SOMNOLENCE [None]
  - VISUAL DISTURBANCE [None]
